FAERS Safety Report 7620717-5 (Version None)
Quarter: 2011Q3

REPORT INFORMATION
  Report Type: 
  Country: None (occurrence: None)
  Receive Date: 20110719
  Receipt Date: 20110711
  Transmission Date: 20111222
  Serious: Yes (Hospitalization)
  Sender: FDA-Public Use
  Company Number: JP-GLAXOSMITHKLINE-B0684970A

PATIENT
  Sex: Male
  Weight: 63 kg

DRUGS (4)
  1. SINGULAIR [Suspect]
     Indication: ASTHMA
     Dosage: 10MG PER DAY
     Route: 048
     Dates: start: 20070625
  2. GW685698 + GW642444 INHALATION POWDER [Suspect]
     Indication: ASTHMA
     Route: 055
     Dates: start: 20101101, end: 20101113
  3. ALBUTEROL SULATE [Suspect]
     Indication: ASTHMA
     Dosage: 100MCG PER DAY
     Route: 055
     Dates: start: 20101022, end: 20101022
  4. OLOPATADINE HCL [Suspect]
     Indication: RHINITIS ALLERGIC
     Dosage: 10MG PER DAY
     Route: 048
     Dates: start: 20071115

REACTIONS (1)
  - CEREBELLAR INFARCTION [None]
